FAERS Safety Report 9611618 (Version 3)
Quarter: 2013Q4

REPORT INFORMATION
  Report Type: Spontaneous
  Country: US (occurrence: US)
  Receive Date: 20131010
  Receipt Date: 20131120
  Transmission Date: 20140711
  Serious: No
  Sender: FDA-Public Use
  Company Number: US-009507513-1310USA003934

PATIENT
  Sex: Female

DRUGS (3)
  1. VICTRELIS [Suspect]
     Indication: CHRONIC HEPATITIS C
     Dosage: UNK
     Route: 048
     Dates: start: 20131004
  2. COPEGUS [Suspect]
     Indication: CHRONIC HEPATITIS C
     Dosage: 1000 MG DAILY
     Route: 065
     Dates: start: 20130830
  3. PEGASYS [Suspect]
     Indication: CHRONIC HEPATITIS C
     Dosage: 180 MICROGRAM, QW
     Route: 058
     Dates: start: 20130830

REACTIONS (10)
  - Nasal dryness [Unknown]
  - Ocular icterus [Unknown]
  - Blood bilirubin increased [Unknown]
  - Local swelling [Unknown]
  - Malaise [Unknown]
  - Epistaxis [Unknown]
  - Dyspnoea [Unknown]
  - Dry mouth [Unknown]
  - Fatigue [Unknown]
  - Dysgeusia [Unknown]
